FAERS Safety Report 7804731-2 (Version None)
Quarter: 2011Q4

REPORT INFORMATION
  Report Type: 
  Country: None (occurrence: None)
  Receive Date: 20111010
  Receipt Date: 20111004
  Transmission Date: 20120403
  Serious: Yes (Hospitalization)
  Sender: FDA-Public Use
  Company Number: US-B.I. PHARMACEUTICALS,INC./RIDGEFIELD-2011-BP-23646BP

PATIENT
  Sex: Female

DRUGS (11)
  1. SPIRIVA [Suspect]
     Indication: CHRONIC OBSTRUCTIVE PULMONARY DISEASE
     Route: 055
     Dates: start: 20070101
  2. CLONAZEPAM [Concomitant]
     Indication: INSOMNIA
     Dates: start: 20110201
  3. VICODIN [Concomitant]
     Indication: BACK PAIN
     Dates: start: 20100101
  4. ALBUTEROL INHALER [Concomitant]
     Indication: CHRONIC OBSTRUCTIVE PULMONARY DISEASE
     Dates: start: 20070101
  5. ASPIRIN [Concomitant]
     Indication: HEART RATE IRREGULAR
     Dosage: 81 MG
     Route: 048
     Dates: start: 20090101
  6. ATENOLOL [Concomitant]
     Indication: HEART RATE IRREGULAR
     Dates: start: 19750101
  7. NEXIUM [Concomitant]
     Indication: GASTROOESOPHAGEAL REFLUX DISEASE
     Dates: start: 19900101
  8. SIMVASTATIN [Concomitant]
     Indication: BLOOD CHOLESTEROL INCREASED
     Dates: start: 20100601
  9. CITALOPRAM [Concomitant]
     Indication: INSOMNIA
     Dates: start: 20110901
  10. LASIX [Concomitant]
     Indication: OEDEMA
     Dates: start: 20060101
  11. POTASSIUM [Concomitant]
     Indication: BLOOD POTASSIUM DECREASED
     Dates: start: 20070101

REACTIONS (2)
  - DYSPNOEA [None]
  - OXYGEN SATURATION DECREASED [None]
